FAERS Safety Report 7645489-X (Version None)
Quarter: 2011Q3

REPORT INFORMATION
  Report Type: 
  Country: None (occurrence: None)
  Receive Date: 20110729
  Receipt Date: 20110720
  Transmission Date: 20111222
  Serious: Yes (Death)
  Sender: FDA-Public Use
  Company Number: US-GENZYME-CLOF-1001719

PATIENT

DRUGS (1)
  1. CLOLAR [Suspect]
     Indication: MYELODYSPLASTIC SYNDROME
     Dosage: UNK
     Route: 048

REACTIONS (3)
  - NEUTROPENIA [None]
  - RENAL FAILURE ACUTE [None]
  - INFECTION [None]
